FAERS Safety Report 19670842 (Version 4)
Quarter: 2021Q4

REPORT INFORMATION
  Report Type: Spontaneous
  Country: US (occurrence: US)
  Receive Date: 20210806
  Receipt Date: 20211007
  Transmission Date: 20220303
  Serious: Yes (Hospitalization)
  Sender: FDA-Public Use
  Company Number: US-PFIZER INC-202100956478

PATIENT
  Age: 36 Year
  Sex: Female
  Weight: 77.11 kg

DRUGS (3)
  1. CHANTIX [Suspect]
     Active Substance: VARENICLINE TARTRATE
     Indication: Smoking cessation therapy
     Dosage: UNK
     Dates: start: 202009
  2. CHANTIX [Suspect]
     Active Substance: VARENICLINE TARTRATE
     Dosage: UNK
     Dates: start: 20210602, end: 20210702
  3. CHANTIX [Suspect]
     Active Substance: VARENICLINE TARTRATE
     Dosage: ONE A DAY FOR THE FIRST WEEK (WHITE PILLS) THEN FOR THE NEXT 3 WEEKS BLUE PILLS TWICE A DAY
     Dates: start: 20210627, end: 20210703

REACTIONS (8)
  - Recalled product administered [Recovered/Resolved]
  - Off label use [Recovered/Resolved]
  - Cardiac disorder [Recovered/Resolved]
  - Psychotic disorder [Recovered/Resolved]
  - Dyspnoea [Recovered/Resolved]
  - Painful respiration [Recovered/Resolved]
  - Pain [Recovered/Resolved]
  - Emotional distress [Recovered/Resolved]

NARRATIVE: CASE EVENT DATE: 20210627
